FAERS Safety Report 8991277 (Version 2)
Quarter: 2013Q1

REPORT INFORMATION
  Report Type: Report from Study
  Country: CA (occurrence: CA)
  Receive Date: 20121231
  Receipt Date: 20130117
  Transmission Date: 20140127
  Serious: Yes (Other)
  Sender: FDA-Public Use
  Company Number: CA-ROCHE-1173131

PATIENT
  Age: 48 Year
  Sex: Female
  Weight: 62.06 kg

DRUGS (7)
  1. OMALIZUMAB [Suspect]
     Indication: ASTHMA
     Dosage: 300 MG, 1/MONTH
     Route: 058
     Dates: start: 20080107
  2. OMALIZUMAB [Suspect]
     Dosage: 150 MG, 1/MONTH
     Route: 058
     Dates: start: 20080107
  3. OMALIZUMAB [Suspect]
     Dosage: 150 MG, 1/MONTH
     Route: 058
     Dates: start: 20091119
  4. ADVAIR [Concomitant]
     Indication: PRODUCT USED FOR UNKNOWN INDICATION
  5. VENTOLIN [Concomitant]
     Indication: PRODUCT USED FOR UNKNOWN INDICATION
  6. ALVESCO [Concomitant]
     Indication: PRODUCT USED FOR UNKNOWN INDICATION
  7. CETIRIZINE [Concomitant]
     Indication: PRODUCT USED FOR UNKNOWN INDICATION

REACTIONS (19)
  - Bronchitis [Recovered/Resolved]
  - Chest pain [Not Recovered/Not Resolved]
  - Lung infection [Unknown]
  - Respiratory tract infection [Unknown]
  - Increased bronchial secretion [Unknown]
  - Dyspnoea [Unknown]
  - Throat tightness [Unknown]
  - Fatigue [Unknown]
  - Fall [Unknown]
  - Abdominal pain upper [Unknown]
  - Gastrooesophageal reflux disease [Unknown]
  - Influenza [Unknown]
  - Sinusitis [Unknown]
  - Headache [Unknown]
  - Neck pain [Unknown]
  - Cough [Unknown]
  - Nasopharyngitis [Unknown]
  - Pruritus [Unknown]
  - Oropharyngeal pain [Unknown]
